FAERS Safety Report 20962542 (Version 1)
Quarter: 2022Q2

REPORT INFORMATION
  Report Type: Spontaneous
  Country: US (occurrence: US)
  Receive Date: 20220615
  Receipt Date: 20220615
  Transmission Date: 20220721
  Serious: No
  Sender: FDA-Public Use
  Company Number: US-TARO PHARMACEUTICALS USA INC.-2022TAR00524

PATIENT

DRUGS (2)
  1. AZELAIC ACID [Suspect]
     Active Substance: AZELAIC ACID
     Indication: Rosacea
     Dosage: BID, APPLY LIGHTLY TO AFFECTED AREA, TOPICAL TO FACE STARTED ABOUT 10 YEARS AGO
     Route: 061
  2. AZELAIC ACID [Suspect]
     Active Substance: AZELAIC ACID
     Dosage: BID, APPLY LIGHTLY TO AFFECTED AREA, TOPICAL TO FACE
     Route: 061
     Dates: start: 202203, end: 20220329

REACTIONS (3)
  - Burning sensation [Recovered/Resolved]
  - Erythema [Recovered/Resolved]
  - Product quality issue [Unknown]

NARRATIVE: CASE EVENT DATE: 20220329
